FAERS Safety Report 5102160-6 (Version None)
Quarter: 2006Q3

REPORT INFORMATION
  Report Type: 
  Country: None (occurrence: None)
  Receive Date: 20060912
  Receipt Date: 20060903
  Transmission Date: 20061208
  Serious: Yes (Other)
  Sender: FDA-Public Use
  Company Number: US-JNJFOC-20060803718

PATIENT
  Sex: Female

DRUGS (4)
  1. REMICADE [Suspect]
     Route: 042
  2. REMICADE [Suspect]
     Indication: RHEUMATOID ARTHRITIS
     Route: 042
  3. METHOTREXATE [Concomitant]
     Indication: RHEUMATOID ARTHRITIS
  4. CELEBREX [Concomitant]
     Indication: RHEUMATOID ARTHRITIS

REACTIONS (5)
  - EYE DISORDER [None]
  - HEADACHE [None]
  - IRRITABLE BOWEL SYNDROME [None]
  - SINUSITIS [None]
  - VISION BLURRED [None]
